FAERS Safety Report 23452708 (Version 1)
Quarter: 2024Q1

REPORT INFORMATION
  Report Type: Spontaneous
  Country: US (occurrence: None)
  Receive Date: 20240129
  Receipt Date: 20240129
  Transmission Date: 20240410
  Serious: Yes (Life-Threatening, Other)
  Sender: FDA-Public Use
  Company Number: None

PATIENT
  Age: 40 Year
  Sex: Female
  Weight: 94.5 kg

DRUGS (9)
  1. CIMZIA [Suspect]
     Active Substance: CERTOLIZUMAB PEGOL
     Indication: Psoriatic arthropathy
     Dosage: OTHER QUANTITY : 1.0 INJECTION(S);?OTHER FREQUENCY : 14 DAYS;?
     Route: 058
     Dates: start: 20240128, end: 20240128
  2. DEVICE [Concomitant]
     Active Substance: DEVICE
  3. OMEPRAZOLE [Concomitant]
     Active Substance: OMEPRAZOLE
  4. NORTRIPTYLINE [Concomitant]
     Active Substance: NORTRIPTYLINE
  5. PREDNISONE [Concomitant]
     Active Substance: PREDNISONE
  6. TRIAMINICLONE OINTMENT [Concomitant]
  7. LEVSIN [Concomitant]
     Active Substance: HYOSCYAMINE SULFATE
  8. VITAMINS [Concomitant]
     Active Substance: VITAMINS
  9. MAGNESIUM [Concomitant]
     Active Substance: MAGNESIUM

REACTIONS (1)
  - Anaphylactic reaction [None]

NARRATIVE: CASE EVENT DATE: 20240128
